FAERS Safety Report 7278311-4 (Version None)
Quarter: 2011Q1

REPORT INFORMATION
  Report Type: 
  Country: None (occurrence: None)
  Receive Date: 20110207
  Receipt Date: 20110126
  Transmission Date: 20110831
  Serious: Yes (Other)
  Sender: FDA-Public Use
  Company Number: JP-BAYER-2011-008920

PATIENT
  Age: 83 Year
  Sex: Male
  Weight: 43.991 kg

DRUGS (9)
  1. SALMETEROL XINAFOATE [Concomitant]
     Indication: ASTHMA
     Dosage: 100 ?G, QD
     Route: 055
  2. RIFAMPICIN [Concomitant]
     Indication: PNEUMONIA LEGIONELLA
     Dosage: UNK
     Route: 048
  3. PREDNISOLONE [Concomitant]
     Indication: ASTHMA
     Dosage: 2 MG, QD
  4. GALENIC /PANIPENEM/BETAMIPRON/ [Concomitant]
     Indication: PYREXIA
     Route: 041
  5. CIPROFLOXACIN HCL [Suspect]
     Indication: PNEUMONIA LEGIONELLA
     Route: 041
  6. THEOPHYLLINE [Concomitant]
     Indication: ASTHMA
     Dosage: 400 MG, QD
  7. FLUTICASONE PROPIONATE [Concomitant]
     Indication: ASTHMA
     Dosage: 200 ?G, QD
     Route: 055
  8. CLINDAMYCIN [Concomitant]
     Indication: PYREXIA
     Route: 041
  9. METHYLPREDNISOLONE [Concomitant]
     Indication: ASTHMA
     Dosage: 125 MG, QD
     Route: 041

REACTIONS (1)
  - LIVER DISORDER [None]
